FAERS Safety Report 25275109 (Version 3)
Quarter: 2025Q3

REPORT INFORMATION
  Report Type: Spontaneous
  Country: MX (occurrence: MX)
  Receive Date: 20250506
  Receipt Date: 20250715
  Transmission Date: 20251021
  Serious: Yes (Hospitalization)
  Sender: MERCK SHARP & DOHME LLC
  Company Number: MX-009507513-2276801

PATIENT
  Age: 56 Year
  Sex: Female
  Weight: 74 kg

DRUGS (4)
  1. EMEND [Suspect]
     Active Substance: APREPITANT
     Indication: Premedication
     Route: 042
     Dates: start: 20250318, end: 20250408
  2. DEXAMETHASONE [Concomitant]
     Active Substance: DEXAMETHASONE
     Indication: Premedication
     Route: 042
     Dates: start: 20250408, end: 20250408
  3. PALONOSETRON [Concomitant]
     Active Substance: PALONOSETRON
     Indication: Premedication
     Route: 042
     Dates: start: 20250408, end: 20250408
  4. Cloropiramina [Concomitant]
     Indication: Premedication
     Route: 042
     Dates: start: 20250408, end: 20250408

REACTIONS (6)
  - Ocular hyperaemia [Recovered/Resolved]
  - Malaise [Unknown]
  - Back pain [Recovered/Resolved]
  - Erythema [Unknown]
  - Face oedema [Unknown]
  - Pain in extremity [Recovered/Resolved]

NARRATIVE: CASE EVENT DATE: 20250408
